FAERS Safety Report 9839745 (Version 1)
Quarter: 2014Q1

REPORT INFORMATION
  Report Type: Spontaneous
  Country: GB (occurrence: GB)
  Receive Date: 20140124
  Receipt Date: 20140124
  Transmission Date: 20141002
  Serious: Yes (Other)
  Sender: FDA-Public Use
  Company Number: GB-DRREDDYS-GER/UKI/14/0037353

PATIENT
  Age: 83 Year
  Sex: Male

DRUGS (11)
  1. SERTRALINE [Suspect]
     Indication: IMPULSE-CONTROL DISORDER
     Route: 048
     Dates: start: 20131206, end: 20131220
  2. CLONAZEPAM [Concomitant]
     Indication: SLEEP DISORDER
     Route: 048
     Dates: start: 201309
  3. CO-AMILOFRUSE [Concomitant]
     Indication: PRODUCT USED FOR UNKNOWN INDICATION
     Route: 048
  4. CO-CODAMOL [Concomitant]
     Indication: PRODUCT USED FOR UNKNOWN INDICATION
  5. GABAPENTIN [Concomitant]
     Indication: PRODUCT USED FOR UNKNOWN INDICATION
  6. INFLUENZA VIRUS [Concomitant]
     Indication: INFLUENZA IMMUNISATION
     Dates: start: 20130928, end: 20130928
  7. LANZOPRAZOLE [Concomitant]
     Indication: PRODUCT USED FOR UNKNOWN INDICATION
     Dates: start: 20131206
  8. LEVOTHYROXINE [Concomitant]
     Indication: PRODUCT USED FOR UNKNOWN INDICATION
  9. MADOPAR [Concomitant]
     Indication: PARKINSON^S DISEASE
     Route: 048
     Dates: end: 20131014
  10. MOVICOL [Concomitant]
     Indication: PRODUCT USED FOR UNKNOWN INDICATION
  11. SIMVASTATIN [Concomitant]
     Indication: PRODUCT USED FOR UNKNOWN INDICATION

REACTIONS (4)
  - Condition aggravated [Unknown]
  - Oedema mouth [Recovered/Resolved]
  - Swollen tongue [Recovered/Resolved]
  - Abnormal dreams [Recovered/Resolved]
